FAERS Safety Report 7251548-6 (Version None)
Quarter: 2011Q1

REPORT INFORMATION
  Report Type: 
  Country: None (occurrence: None)
  Receive Date: 20110128
  Receipt Date: 20110124
  Transmission Date: 20110831
  Serious: Yes (Other)
  Sender: FDA-Public Use
  Company Number: CHPA2011US01372

PATIENT
  Age: 86 Year
  Sex: Female
  Weight: 81.633 kg

DRUGS (1)
  1. VOLTAREN [Suspect]
     Indication: ROTATOR CUFF SYNDROME
     Dosage: UNK, UNK
     Route: 061

REACTIONS (4)
  - HAEMATOCHEZIA [None]
  - WRONG TECHNIQUE IN DRUG USAGE PROCESS [None]
  - DRUG ADMINISTERED AT INAPPROPRIATE SITE [None]
  - OFF LABEL USE [None]
